FAERS Safety Report 8535977-6 (Version None)
Quarter: 2012Q3

REPORT INFORMATION
  Report Type: 
  Country: None (occurrence: None)
  Receive Date: 20120725
  Receipt Date: 20120723
  Transmission Date: 20120928
  Serious: Yes (Death, Other)
  Sender: FDA-Public Use
  Company Number: PHHY2012JP061906

PATIENT
  Age: 61 Year
  Sex: Male

DRUGS (4)
  1. OXYCONTIN [Concomitant]
     Indication: CANCER PAIN
     Dosage: 180 MG
     Route: 048
  2. GABAPENTIN [Concomitant]
     Indication: CANCER PAIN
     Dosage: 400 MG,
     Route: 048
  3. OXYCODONE HYDROCHLORIDE [Concomitant]
     Indication: CANCER PAIN
     Dosage: 30 MG, UNK
     Route: 048
  4. VOLTAREN-XR [Suspect]
     Indication: CANCER PAIN
     Dosage: 75 MG DAILY
     Route: 048

REACTIONS (4)
  - INTERSTITIAL LUNG DISEASE [None]
  - DIVERTICULUM INTESTINAL [None]
  - DEATH [None]
  - GASTROINTESTINAL PERFORATION [None]
